FAERS Safety Report 9109357 (Version 1)
Quarter: 2013Q1

REPORT INFORMATION
  Report Type: Spontaneous
  Country: JP (occurrence: JP)
  Receive Date: 20130222
  Receipt Date: 20130222
  Transmission Date: 20140127
  Serious: Yes (Life-Threatening)
  Sender: FDA-Public Use
  Company Number: JP-AMGEN-JPNSP2013012597

PATIENT
  Age: 78 Year
  Sex: Female

DRUGS (1)
  1. RANMARK [Suspect]
     Indication: BONE LESION
     Dosage: 120 MG, SINGLE
     Route: 058
     Dates: start: 20120927

REACTIONS (1)
  - Hypocalcaemia [Not Recovered/Not Resolved]
